FAERS Safety Report 20006476 (Version 1)
Quarter: 2021Q4

REPORT INFORMATION
  Report Type: Spontaneous
  Country: US (occurrence: US)
  Receive Date: 20211028
  Receipt Date: 20211028
  Transmission Date: 20220304
  Serious: Yes (Death, Other)
  Sender: FDA-Public Use
  Company Number: US-SA-SAC20211027001011

PATIENT
  Age: 47 Year
  Sex: Female

DRUGS (1)
  1. ZANTAC [Suspect]
     Active Substance: RANITIDINE HYDROCHLORIDE
     Indication: Dyspepsia
     Dosage: UNK OCCASIONAL
     Dates: start: 201601, end: 201912

REACTIONS (3)
  - Colorectal cancer [Fatal]
  - Hepatic cancer [Fatal]
  - Gastric cancer [Fatal]

NARRATIVE: CASE EVENT DATE: 20190901
